FAERS Safety Report 5169017-6 (Version None)
Quarter: 2006Q4

REPORT INFORMATION
  Report Type: 
  Country: None (occurrence: None)
  Receive Date: 20061201
  Receipt Date: 20061115
  Transmission Date: 20070319
  Serious: Yes (Disabling, Other)
  Sender: FDA-Public Use
  Company Number: 2006BL006431

PATIENT
  Age: 42 Year
  Sex: Female

DRUGS (1)
  1. RETISERT [Suspect]
     Indication: CHOROIDITIS
     Dosage: 0.59 MILLIGRAMS; RIGHT EYE
     Dates: start: 20010523, end: 20061009

REACTIONS (18)
  - ACTIVITIES OF DAILY LIVING IMPAIRED [None]
  - BLINDNESS UNILATERAL [None]
  - CHOROIDAL EFFUSION [None]
  - CORNEAL OEDEMA [None]
  - DEVICE DISLOCATION [None]
  - EYE DISORDER [None]
  - EYE HAEMORRHAGE [None]
  - EYE INFLAMMATION [None]
  - EYE PAIN [None]
  - HYPOTONIA [None]
  - IMPAIRED DRIVING ABILITY [None]
  - IMPLANT SITE REACTION [None]
  - INTRAOCULAR PRESSURE TEST ABNORMAL [None]
  - POST PROCEDURAL COMPLICATION [None]
  - RETINAL DEGENERATION [None]
  - RETINAL DISORDER [None]
  - SCLERITIS [None]
  - VISUAL ACUITY REDUCED [None]
